FAERS Safety Report 8008364-7 (Version None)
Quarter: 2011Q4

REPORT INFORMATION
  Report Type: 
  Country: None (occurrence: None)
  Receive Date: 20111227
  Receipt Date: 20111221
  Transmission Date: 20120403
  Serious: Yes (Hospitalization, Other)
  Sender: FDA-Public Use
  Company Number: US-ROCHE-802931

PATIENT
  Sex: Female
  Weight: 47.67 kg

DRUGS (1)
  1. ACCUTANE [Suspect]
     Indication: ACNE
     Route: 065
     Dates: start: 19940101, end: 19950101

REACTIONS (7)
  - INFLAMMATORY BOWEL DISEASE [None]
  - SELF ESTEEM DECREASED [None]
  - IRRITABLE BOWEL SYNDROME [None]
  - ANXIETY [None]
  - WEIGHT INCREASED [None]
  - CROHN'S DISEASE [None]
  - DEPRESSION [None]
